FAERS Safety Report 4504470-X (Version None)
Quarter: 2004Q4

REPORT INFORMATION
  Report Type: 
  Country: None (occurrence: None)
  Receive Date: 20041118
  Receipt Date: 20030407
  Transmission Date: 20050328
  Serious: Yes (Hospitalization, Disabling, Other)
  Sender: FDA-Public Use
  Company Number: US-MERCK-0304USA00753

PATIENT
  Age: 51 Year
  Sex: Male
  Weight: 118 kg

DRUGS (15)
  1. VIOXX [Suspect]
     Indication: OSTEOARTHRITIS
     Route: 048
     Dates: start: 20000201, end: 20000822
  2. VIOXX [Suspect]
     Route: 048
     Dates: start: 20010101
  3. VIOXX [Suspect]
     Indication: BACK PAIN
     Route: 048
     Dates: start: 20000201, end: 20000822
  4. VIOXX [Suspect]
     Route: 048
     Dates: start: 20010101
  5. NAPROXEN [Concomitant]
     Route: 065
     Dates: start: 19820101
  6. INDOCIN [Concomitant]
     Route: 048
     Dates: start: 19820101
  7. ZYRTEC [Concomitant]
     Route: 065
     Dates: start: 19950101
  8. PRILOSEC [Concomitant]
     Route: 065
  9. CELEXA [Concomitant]
     Route: 065
     Dates: start: 19990101
  10. ACIPHEX [Concomitant]
     Route: 065
     Dates: start: 19990101
  11. ATENOLOL [Concomitant]
     Route: 065
  12. OXYCONTIN [Concomitant]
     Route: 065
     Dates: start: 20000101, end: 20020101
  13. HYDROCODONE BITARTRATE [Concomitant]
     Indication: BACK PAIN
     Route: 065
     Dates: end: 20000822
  14. LEVSIN PB [Concomitant]
     Route: 065
     Dates: end: 20000822
  15. FLONASE [Concomitant]
     Route: 065

REACTIONS (55)
  - ACUTE MYOCARDIAL INFARCTION [None]
  - ANGINA PECTORIS [None]
  - AORTIC VALVE INCOMPETENCE [None]
  - ARTHRALGIA [None]
  - ASTHENIA [None]
  - BACK PAIN [None]
  - CARDIAC DISORDER [None]
  - CARDIOMEGALY [None]
  - CARPAL TUNNEL SYNDROME [None]
  - CHEST PAIN [None]
  - CORONARY ARTERY ATHEROSCLEROSIS [None]
  - CORONARY ARTERY STENOSIS [None]
  - DECREASED ACTIVITY [None]
  - DISEASE RECURRENCE [None]
  - DRUG INEFFECTIVE [None]
  - DYSLIPIDAEMIA [None]
  - DYSPNOEA [None]
  - ELECTROCARDIOGRAM ABNORMAL [None]
  - EXTRAVASATION [None]
  - FALL [None]
  - HIGH DENSITY LIPOPROTEIN DECREASED [None]
  - HYPERHIDROSIS [None]
  - HYPOAESTHESIA [None]
  - INJURY [None]
  - INTERVERTEBRAL DISC DISPLACEMENT [None]
  - JOINT CREPITATION [None]
  - LOOSE BODY IN JOINT [None]
  - MITRAL VALVE CALCIFICATION [None]
  - MITRAL VALVE INCOMPETENCE [None]
  - MUSCLE ATROPHY [None]
  - MUSCLE INJURY [None]
  - MUSCULAR WEAKNESS [None]
  - MYALGIA [None]
  - MYOCARDIAL ISCHAEMIA [None]
  - NECK PAIN [None]
  - NIGHT SWEATS [None]
  - PAIN IN EXTREMITY [None]
  - PAIN IN JAW [None]
  - PALLOR [None]
  - PERIPHERAL COLDNESS [None]
  - PROCEDURAL SITE REACTION [None]
  - PYREXIA [None]
  - ROAD TRAFFIC ACCIDENT [None]
  - ROTATOR CUFF SYNDROME [None]
  - SCAPULA FRACTURE [None]
  - SINUS BRADYCARDIA [None]
  - SKIN LACERATION [None]
  - SPINAL OSTEOARTHRITIS [None]
  - SUPRAVENTRICULAR EXTRASYSTOLES [None]
  - TENDONITIS [None]
  - THERAPY NON-RESPONDER [None]
  - TRIGGER FINGER [None]
  - UMBILICAL HERNIA [None]
  - VENTRICULAR DYSFUNCTION [None]
  - VENTRICULAR HYPOKINESIA [None]
